FAERS Safety Report 21200213 (Version 1)
Quarter: 2022Q3

REPORT INFORMATION
  Report Type: Spontaneous
  Country: KR (occurrence: KR)
  Receive Date: 20220811
  Receipt Date: 20220811
  Transmission Date: 20221027
  Serious: Yes (Other)
  Sender: FDA-Public Use
  Company Number: KR-ASTELLAS PHARMA EUROPE B.V.-2022US028346

PATIENT
  Age: 80 Year
  Sex: Male

DRUGS (4)
  1. HARNAL [Suspect]
     Active Substance: TAMSULOSIN HYDROCHLORIDE
     Indication: Benign prostatic hyperplasia
     Dosage: 0.2 MG, ONCE DAILY (BEFORE BED)
     Route: 065
  2. VESICARE [Suspect]
     Active Substance: SOLIFENACIN SUCCINATE
     Indication: Micturition urgency
     Dosage: 1 DF, ONCE DAILY (IN THE MORNING)
     Route: 065
  3. IMIDAFENACIN [Concomitant]
     Active Substance: IMIDAFENACIN
     Indication: Micturition urgency
     Dosage: UNK UNK, UNKNOWN FREQ.
     Route: 065
  4. OMEGA 3 [Concomitant]
     Active Substance: CAPSAICIN
     Indication: Product used for unknown indication
     Dosage: UNK UNK, UNKNOWN FREQ.
     Route: 065

REACTIONS (9)
  - Thrombocytopenia [Unknown]
  - Ejaculation disorder [Unknown]
  - Male reproductive tract disorder [Unknown]
  - Micturition urgency [Unknown]
  - Condition aggravated [Unknown]
  - Dizziness postural [Unknown]
  - Quality of life decreased [Unknown]
  - Drug ineffective [Unknown]
  - Drug ineffective [Unknown]
